FAERS Safety Report 5086073-4 (Version None)
Quarter: 2006Q3

REPORT INFORMATION
  Report Type: 
  Country: None (occurrence: None)
  Receive Date: 20060817
  Receipt Date: 20060802
  Transmission Date: 20061208
  Serious: Yes (Other)
  Sender: FDA-Public Use
  Company Number: CHNY2006BR02291

PATIENT
  Age: 16 Year
  Sex: Female
  Weight: 55 kg

DRUGS (1)
  1. CIBALENAA (NCH) (CAFFEINE CITRATE, ACETYLSALYCILIC ACID, ACETAMINOPHEN [Suspect]
     Indication: HEADACHE
     Dosage: 2 TABS MORNING, 2 AFTER LUNCH, ORAL
     Route: 048
     Dates: start: 20060729, end: 20060729

REACTIONS (2)
  - DRUG EXPOSURE DURING PREGNANCY [None]
  - HAEMORRHAGE [None]
